FAERS Safety Report 8924179 (Version 1)
Quarter: 2012Q4

REPORT INFORMATION
  Report Type: Spontaneous
  Country: NL (occurrence: None)
  Receive Date: 20121116
  Receipt Date: 20121116
  Transmission Date: 20130627
  Serious: Yes (Hospitalization)
  Sender: FDA-Public Use
  Company Number: 2012000245

PATIENT
  Age: 67 Year
  Sex: Male

DRUGS (6)
  1. ACEON [Suspect]
     Indication: ACUTE MYOCARDIAL INFARCTION
     Route: 048
     Dates: start: 201209, end: 20121014
  2. PRASUGREL [Suspect]
     Route: 048
     Dates: start: 20120920, end: 20121019
  3. ATORVASTATINE PFIZER [Suspect]
     Dates: start: 201209, end: 20121014
  4. OMEPRAZOLE (OMEPRAZOLE) [Concomitant]
  5. ACETYLSALICYLIC ACID (ACETYLSALICYLIC ACID) [Concomitant]
  6. CARBASALATE CALCIUM (CARBASALATE CALCIUM) [Concomitant]

REACTIONS (5)
  - Liver function test abnormal [None]
  - Malaise [None]
  - Eosinophilia [None]
  - Renal failure [None]
  - Pyrexia [None]
